FAERS Safety Report 5289250-2 (Version None)
Quarter: 2007Q2

REPORT INFORMATION
  Report Type: 
  Country: None (occurrence: None)
  Receive Date: 20070403
  Receipt Date: 20070403
  Transmission Date: 20071010
  Serious: Yes (Other)
  Sender: FDA-Public Use
  Company Number: None

PATIENT
  Sex: Female
  Weight: 72.5755 kg

DRUGS (2)
  1. VYTORIN [Suspect]
     Indication: BLOOD CHOLESTEROL ABNORMAL
     Dosage: 1   DAILY   PO
     Route: 048
     Dates: start: 20060501, end: 20070101
  2. VYTORIN [Suspect]
     Indication: C-REACTIVE PROTEIN INCREASED
     Dosage: 1   DAILY   PO
     Route: 048
     Dates: start: 20060501, end: 20070101

REACTIONS (3)
  - ARRHYTHMIA [None]
  - CARDIAC DISORDER [None]
  - CORONARY ARTERY OCCLUSION [None]
